FAERS Safety Report 8229445-9 (Version None)
Quarter: 2012Q1

REPORT INFORMATION
  Report Type: 
  Country: None (occurrence: None)
  Receive Date: 20120322
  Receipt Date: 20120313
  Transmission Date: 20120608
  Serious: Yes (Other)
  Sender: FDA-Public Use
  Company Number: AT-ROCHE-1018719

PATIENT
  Sex: Female
  Weight: 86 kg

DRUGS (3)
  1. VISMODEGIB [Suspect]
     Indication: BASAL CELL CARCINOMA
     Dosage: DAILY, LAST DOSE PRIOR TO SAE 24 NOV 2011
     Route: 048
     Dates: start: 20111028
  2. ACETAMINOPHEN [Suspect]
     Indication: PRODUCT USED FOR UNKNOWN INDICATION
     Route: 065
     Dates: start: 20111123, end: 20111123
  3. ACETAMINOPHEN [Suspect]
     Dates: start: 20111124, end: 20111124

REACTIONS (1)
  - HEPATIC ENZYME INCREASED [None]
